FAERS Safety Report 5576471-4 (Version None)
Quarter: 2007Q4

REPORT INFORMATION
  Report Type: 
  Country: None (occurrence: None)
  Receive Date: 20071228
  Receipt Date: 20071217
  Transmission Date: 20080405
  Serious: Yes (Hospitalization)
  Sender: FDA-Public Use
  Company Number: US-AVENTIS-200716274US

PATIENT
  Sex: Female
  Weight: 81 kg

DRUGS (8)
  1. KETEK [Suspect]
     Indication: BRONCHITIS
     Route: 048
     Dates: start: 20060118, end: 20060127
  2. MEDROL [Concomitant]
     Dosage: DOSE: UNK
     Dates: start: 20060118
  3. ALBUTEROL [Concomitant]
     Dosage: DOSE: 2 PUFFS
     Dates: start: 20060111
  4. XOPENEX [Concomitant]
     Dates: start: 20060111
  5. ROCEPHIN                           /00672201/ [Concomitant]
     Route: 030
     Dates: start: 20060111
  6. CELESTONE                          /00008501/ [Concomitant]
     Dates: start: 20060111
  7. TYLENOL [Concomitant]
  8. XANAX [Concomitant]

REACTIONS (12)
  - ABDOMINAL TENDERNESS [None]
  - ASTHENIA [None]
  - FATIGUE [None]
  - HEPATIC ENZYME INCREASED [None]
  - HEPATITIS [None]
  - HYPERHIDROSIS [None]
  - JAUNDICE [None]
  - LETHARGY [None]
  - NAUSEA [None]
  - PYREXIA [None]
  - UPPER RESPIRATORY TRACT INFECTION [None]
  - VOMITING [None]
